FAERS Safety Report 20912680 (Version 1)
Quarter: 2022Q2

REPORT INFORMATION
  Report Type: Spontaneous
  Country: IT (occurrence: IT)
  Receive Date: 20220603
  Receipt Date: 20220603
  Transmission Date: 20220721
  Serious: Yes (Other)
  Sender: FDA-Public Use
  Company Number: None

PATIENT
  Age: 54 Year
  Sex: Female
  Weight: 97 kg

DRUGS (5)
  1. LEVOFLOXACIN [Interacting]
     Active Substance: LEVOFLOXACIN
     Indication: Lymph node tuberculosis
     Dosage: 1000MG, FREQUENCY TIME 1DAYS, DURATION 126DAYS
     Route: 048
     Dates: start: 20211108, end: 20220314
  2. ACETAMINOPHEN [Interacting]
     Active Substance: ACETAMINOPHEN
     Dosage: 1GM, FREQUENCY TIME 1AS REQUIRED
     Route: 065
  3. ISONIAZID [Interacting]
     Active Substance: ISONIAZID
     Indication: Lymph node tuberculosis
     Dosage: 1.5DF, FREQUENCY TIME 1DAYS, DURATION 147DAYS
     Route: 048
     Dates: start: 20211018, end: 20220314
  4. ETHAMBUTOL HYDROCHLORIDE [Interacting]
     Active Substance: ETHAMBUTOL HYDROCHLORIDE
     Indication: Lymph node tuberculosis
     Dosage: 4DF, STRENGTH 400MG, FREQUENCY TIME 1DAYS, DURATION 124DAYS
     Route: 048
     Dates: start: 20211110, end: 20220314
  5. CHOLECALCIFEROL [Concomitant]
     Active Substance: CHOLECALCIFEROL
     Dosage: BASE 10,000 I.U./ML

REACTIONS (2)
  - Drug interaction [Recovering/Resolving]
  - Hepatotoxicity [Recovering/Resolving]

NARRATIVE: CASE EVENT DATE: 20220314
